FAERS Safety Report 4720158-4 (Version None)
Quarter: 2005Q3

REPORT INFORMATION
  Report Type: 
  Country: None (occurrence: None)
  Receive Date: 20050721
  Receipt Date: 20040506
  Transmission Date: 20060218
  Serious: No
  Sender: FDA-Public Use
  Company Number: US-GLAXOSMITHKLINE-A0509836A

PATIENT
  Age: 42 Year
  Sex: Female

DRUGS (5)
  1. IMITREX [Suspect]
     Indication: MIGRAINE
     Dosage: 25MG VARIABLE DOSE
     Route: 048
  2. IMITREX [Suspect]
     Route: 048
  3. MOTRIN [Concomitant]
  4. VIOXX [Concomitant]
  5. CHLOR-TRIMETON [Concomitant]

REACTIONS (3)
  - DRUG INEFFECTIVE [None]
  - FLUSHING [None]
  - MUSCLE TIGHTNESS [None]
